FAERS Safety Report 6464071-3 (Version None)
Quarter: 2009Q4

REPORT INFORMATION
  Report Type: 
  Country: None (occurrence: None)
  Receive Date: 20091201
  Receipt Date: 20091124
  Transmission Date: 20100525
  Serious: Yes (Hospitalization)
  Sender: FDA-Public Use
  Company Number: JP-BAYER-200914589BYL

PATIENT
  Age: 79 Year
  Sex: Male

DRUGS (10)
  1. NEXAVAR [Suspect]
     Indication: HEPATIC NEOPLASM MALIGNANT
     Dosage: TOTAL DAILY DOSE: 400 MG  UNIT DOSE: 200 MG
     Route: 048
     Dates: start: 20091113, end: 20091123
  2. LASIX [Concomitant]
     Route: 065
  3. ALDACTONE [Concomitant]
     Route: 048
  4. ARTIST [Concomitant]
     Route: 048
  5. ASPIRIN [Concomitant]
     Route: 048
  6. DIOVAN [Concomitant]
     Route: 048
  7. GASTER [Concomitant]
     Route: 065
  8. ALOSITOL [Concomitant]
     Route: 048
  9. AMARYL [Concomitant]
     Route: 048
  10. WARFARIN SODIUM [Concomitant]
     Route: 048

REACTIONS (2)
  - LIVER FUNCTION TEST ABNORMAL [None]
  - RENAL IMPAIRMENT [None]
